FAERS Safety Report 21698334 (Version 1)
Quarter: 2022Q4

REPORT INFORMATION
  Report Type: Report from Study
  Country: US (occurrence: US)
  Receive Date: 20221208
  Receipt Date: 20221208
  Transmission Date: 20230113
  Serious: Yes (Other)
  Sender: FDA-Public Use
  Company Number: US-TAKEDA-2022TUS092496

PATIENT
  Sex: Female
  Weight: 45 kg

DRUGS (2)
  1. BORTEZOMIB [Suspect]
     Active Substance: BORTEZOMIB
     Indication: Plasma cell myeloma
     Dosage: UNK UNK, Q2WEEKS
     Route: 065
     Dates: start: 2016
  2. REVLIMID [Suspect]
     Active Substance: LENALIDOMIDE
     Indication: Plasma cell myeloma
     Dosage: UNK
     Route: 065
     Dates: start: 2016

REACTIONS (9)
  - Renal injury [Unknown]
  - Parkinson^s disease [Unknown]
  - Osteoporosis [Unknown]
  - Hypersensitivity [Unknown]
  - Mental disorder [Unknown]
  - Serum ferritin increased [Unknown]
  - Red blood cell count decreased [Unknown]
  - T-lymphocyte count increased [Unknown]
  - Asthenia [Unknown]
